FAERS Safety Report 18877535 (Version 5)
Quarter: 2022Q1

REPORT INFORMATION
  Report Type: Report from Study
  Country: JP (occurrence: JP)
  Receive Date: 20210211
  Receipt Date: 20220128
  Transmission Date: 20220423
  Serious: Yes (Life-Threatening, Hospitalization)
  Sender: FDA-Public Use
  Company Number: JP-KYOWAKIRIN-2020AKK018996

PATIENT

DRUGS (63)
  1. MOGAMULIZUMAB [Suspect]
     Active Substance: MOGAMULIZUMAB
     Indication: Adult T-cell lymphoma/leukaemia
     Dosage: 1 MG/KG
     Route: 041
     Dates: start: 20161114, end: 20161114
  2. PREDONINE [Suspect]
     Active Substance: PREDNISOLONE
     Indication: Erythema
     Dosage: UNK
     Route: 048
     Dates: start: 20161225, end: 20161226
  3. CHLORPHENIRAMINE MALEATE [Concomitant]
     Active Substance: CHLORPHENIRAMINE MALEATE
     Indication: Prophylaxis
     Dosage: UNK
     Route: 065
     Dates: start: 20161114, end: 20161114
  4. DEXAMETHASONE SODIUM PHOSPHATE [Concomitant]
     Active Substance: DEXAMETHASONE SODIUM PHOSPHATE
     Indication: Prophylaxis
     Dosage: 6.6 MG
     Route: 065
     Dates: start: 20161114, end: 20161114
  5. ISCOTIN [Concomitant]
     Active Substance: ISONIAZID
     Indication: Infection prophylaxis
     Dosage: UNK
     Route: 048
     Dates: start: 20161112, end: 20161228
  6. SULFAMETHOXAZOLE\TRIMETHOPRIM [Concomitant]
     Active Substance: SULFAMETHOXAZOLE\TRIMETHOPRIM
     Indication: Infection prophylaxis
     Dosage: UNK
     Route: 048
     Dates: start: 20161112, end: 20161228
  7. FLUCONAZOLE [Concomitant]
     Active Substance: FLUCONAZOLE
     Indication: Infection prophylaxis
     Dosage: UNK
     Route: 048
     Dates: start: 20161112, end: 20161201
  8. FILGRASTIM [Concomitant]
     Active Substance: FILGRASTIM
     Indication: White blood cell count decreased
     Dosage: UNK
     Route: 065
     Dates: start: 20161124, end: 20161203
  9. PREDNISOLONE ACETATE [Concomitant]
     Active Substance: PREDNISOLONE ACETATE
     Indication: Prophylaxis
     Dosage: UNK
     Route: 048
  10. FEBUXOSTAT [Concomitant]
     Active Substance: FEBUXOSTAT
     Indication: Prophylaxis
     Dosage: UNK
     Route: 048
     Dates: end: 20161228
  11. MIYA-BM [Concomitant]
     Active Substance: CLOSTRIDIUM BUTYRICUM SPORES STRAIN M-55
     Indication: Prophylaxis
     Dosage: UNK
     Route: 048
     Dates: end: 20161228
  12. UBIDECARENONE [Concomitant]
     Active Substance: UBIDECARENONE
     Indication: Prophylaxis
     Dosage: UNK
     Route: 048
     Dates: end: 20161228
  13. MAGNESIUM OXIDE [Concomitant]
     Active Substance: MAGNESIUM OXIDE
     Indication: Prophylaxis
     Dosage: UNK
     Route: 048
     Dates: end: 20161130
  14. SENNOSIDES A AND B [Concomitant]
     Active Substance: SENNOSIDES A AND B
     Indication: Prophylaxis
     Dosage: UNK
     Route: 048
     Dates: end: 20161228
  15. LOXOPROFEN [Concomitant]
     Active Substance: LOXOPROFEN
     Dosage: UNK
     Route: 048
     Dates: end: 20161218
  16. RABEPRAZOLE SODIUM [Concomitant]
     Active Substance: RABEPRAZOLE SODIUM
     Indication: Prophylaxis
     Dosage: UNK
     Route: 048
     Dates: start: 20161025, end: 20161228
  17. PREDNISOLONE [Concomitant]
     Active Substance: PREDNISOLONE
     Indication: Prophylaxis
     Dosage: UNK
     Route: 048
     Dates: end: 20161228
  18. TOCOPHERYL NICOTINATE, D-.ALPHA. [Concomitant]
     Active Substance: TOCOPHERYL NICOTINATE, D-.ALPHA.
     Indication: Prophylaxis
     Dosage: UNK
     Route: 048
     Dates: end: 20161228
  19. BERAPROST SODIUM [Concomitant]
     Active Substance: BERAPROST SODIUM
     Indication: Prophylaxis
     Dosage: UNK
     Route: 048
     Dates: end: 20161228
  20. TRAMCET [Concomitant]
     Active Substance: ACETAMINOPHEN\TRAMADOL
     Dosage: UNK
     Route: 048
     Dates: end: 20170103
  21. OLOPATADINE HYDROCHLORIDE OD [Concomitant]
     Dosage: UNK
     Route: 048
     Dates: end: 20161228
  22. LYRICA [Concomitant]
     Active Substance: PREGABALIN
     Dosage: UNK
     Route: 048
     Dates: end: 20161228
  23. MAGNESIUM OXIDE [Concomitant]
     Active Substance: MAGNESIUM OXIDE
     Indication: Prophylaxis
     Dosage: UNK
     Route: 048
     Dates: start: 20161117, end: 20161228
  24. ALFACALCIDOL [Concomitant]
     Active Substance: ALFACALCIDOL
     Dosage: UNK
     Route: 048
     Dates: end: 20161228
  25. BUCILLAMINE [Concomitant]
     Active Substance: BUCILLAMINE
     Dosage: UNK
     Route: 048
     Dates: end: 20161123
  26. GUAIAZULENE [Concomitant]
     Active Substance: GUAIAZULENE
     Indication: Anal erosion
     Dosage: UNK
     Route: 061
     Dates: start: 20170104, end: 20170105
  27. CLOBETASOL [Concomitant]
     Active Substance: CLOBETASOL
     Indication: Erythema
     Dosage: UNK
     Route: 061
     Dates: start: 20161121, end: 20170127
  28. PROTOPIC [Concomitant]
     Active Substance: TACROLIMUS
     Dosage: UNK
     Route: 061
     Dates: end: 20170127
  29. DEXAMETHASONE DIPROPIONATE [Concomitant]
     Active Substance: DEXAMETHASONE DIPROPIONATE
     Dosage: UNK
     Route: 061
     Dates: end: 20161122
  30. REFLAP [Concomitant]
     Indication: Erythema
     Dosage: UNK
     Route: 061
     Dates: start: 20161121, end: 20161122
  31. LOCOID [Concomitant]
     Active Substance: HYDROCORTISONE BUTYRATE
     Dosage: UNK
     Route: 061
     Dates: end: 20170117
  32. PREDNISOLONE SODIUM SUCCINATE [Concomitant]
     Active Substance: PREDNISOLONE SODIUM SUCCINATE
     Dosage: UNK
     Route: 065
     Dates: end: 20170209
  33. BEPOTASTINE BESYLATE [Concomitant]
     Active Substance: BEPOTASTINE BESYLATE
     Indication: Erythema
     Dosage: UNK
     Route: 048
     Dates: start: 20161121, end: 20161201
  34. XYZAL [Concomitant]
     Active Substance: LEVOCETIRIZINE DIHYDROCHLORIDE
     Indication: Erythema
     Dosage: UNK
     Route: 048
     Dates: start: 20161205, end: 20161211
  35. FAMOTIDINE [Concomitant]
     Active Substance: FAMOTIDINE
     Indication: Prophylaxis
     Dosage: UNK
     Route: 048
     Dates: end: 20161123
  36. ICOSAPENT ETHYL [Concomitant]
     Active Substance: ICOSAPENT ETHYL
     Indication: Prophylaxis
     Dosage: UNK
     Route: 048
     Dates: end: 20161123
  37. GRANISETRON [Concomitant]
     Active Substance: GRANISETRON
     Indication: Prophylaxis
     Dosage: UNK
     Route: 065
     Dates: start: 20161115, end: 20161210
  38. MAXIPIME [Concomitant]
     Active Substance: CEFEPIME HYDROCHLORIDE
     Indication: Pyrexia
     Dosage: UNK
     Route: 065
     Dates: start: 20161205, end: 20170205
  39. GANCICLOVIR [Concomitant]
     Active Substance: GANCICLOVIR
     Indication: Pyrexia
     Dosage: UNK
     Route: 065
     Dates: start: 20161230, end: 20170209
  40. MICAFUNGIN SODIUM [Concomitant]
     Active Substance: MICAFUNGIN SODIUM
     Indication: Pyrexia
     Dosage: UNK
     Route: 065
     Dates: start: 20161228, end: 20170203
  41. AMPICILLIN SODIUM\SULBACTAM SODIUM [Concomitant]
     Active Substance: AMPICILLIN SODIUM\SULBACTAM SODIUM
     Indication: Pyrexia
     Dosage: UNK
     Route: 065
     Dates: start: 20161222, end: 20161227
  42. FUROSEMIDE [Concomitant]
     Active Substance: FUROSEMIDE
     Indication: Pyrexia
     Dosage: UNK
     Route: 048
     Dates: start: 20161128, end: 20161228
  43. SAMSCA [Concomitant]
     Active Substance: TOLVAPTAN
     Indication: Pyrexia
     Dosage: UNK
     Route: 048
     Dates: start: 20161128, end: 20161228
  44. ALESION [Concomitant]
     Active Substance: EPINASTINE HYDROCHLORIDE
     Indication: Erythema
     Dosage: UNK
     Route: 048
     Dates: start: 20161128, end: 20161204
  45. CEFDINIR [Concomitant]
     Active Substance: CEFDINIR
     Indication: Pyrexia
     Dosage: UNK
     Route: 048
     Dates: start: 20161130, end: 20161202
  46. LEVOFLOXACIN HEMIHYDRATE [Concomitant]
     Active Substance: LEVOFLOXACIN
     Indication: Pyrexia
     Dosage: UNK
     Route: 048
     Dates: start: 20161130, end: 20161202
  47. OXAROL [Concomitant]
     Active Substance: MAXACALCITOL
     Indication: Erythema
     Dosage: UNK
     Route: 061
     Dates: start: 20161205, end: 20170127
  48. SALICYLIC ACID [Concomitant]
     Active Substance: SALICYLIC ACID
     Indication: Erythema
     Dosage: UNK
     Route: 061
     Dates: start: 20170116, end: 20170127
  49. SODIUM BICARBONATE\SODIUM PHOSPHATE, MONOBASIC [Concomitant]
     Active Substance: SODIUM BICARBONATE\SODIUM PHOSPHATE, MONOBASIC
     Indication: Prophylaxis
     Dosage: UNK
     Route: 054
     Dates: start: 20170202, end: 20170208
  50. GASTER [Concomitant]
     Active Substance: FAMOTIDINE
     Indication: Prophylaxis
     Dosage: UNK
     Route: 065
     Dates: start: 20161228, end: 20170209
  51. METHYLPREDNISOLONE SODIUM SUCCINATE [Concomitant]
     Active Substance: METHYLPREDNISOLONE SODIUM SUCCINATE
     Indication: Erythema
     Dosage: UNK
     Route: 065
     Dates: start: 20161222, end: 20161224
  52. BIAPENEM [Concomitant]
     Active Substance: BIAPENEM
     Indication: Pyrexia
     Dosage: UNK
     Route: 065
     Dates: start: 20161231, end: 20170113
  53. ORGARAN [Concomitant]
     Active Substance: DANAPAROID SODIUM
     Indication: Prophylaxis
     Dosage: UNK
     Route: 065
     Dates: start: 20170123, end: 20170204
  54. ACTEMRA [Concomitant]
     Active Substance: TOCILIZUMAB
     Indication: Interleukin level increased
     Dosage: UNK
     Route: 065
     Dates: start: 20170128, end: 20170128
  55. EBASTEL OD [Concomitant]
     Indication: Erythema
     Dosage: UNK
     Route: 048
     Dates: start: 20161212, end: 20161226
  56. SAXIZON [Concomitant]
     Active Substance: HYDROCORTISONE SODIUM SUCCINATE
     Indication: Pyrexia
     Dosage: UNK
     Route: 065
     Dates: start: 20161202, end: 20170210
  57. LENOGRASTIM [Concomitant]
     Active Substance: LENOGRASTIM
     Indication: White blood cell count decreased
     Dosage: UNK
     Route: 065
     Dates: start: 20161216, end: 20161222
  58. FUROSEMIDE [Concomitant]
     Active Substance: FUROSEMIDE
     Indication: Prophylaxis
     Dosage: UNK
     Route: 065
     Dates: start: 20170209, end: 20170209
  59. FLURBIPROFEN AXETIL [Concomitant]
     Active Substance: FLURBIPROFEN AXETIL
     Indication: Pyrexia
     Dosage: UNK
     Route: 065
     Dates: start: 20161229, end: 20170124
  60. NOVOLIN R [Concomitant]
     Active Substance: INSULIN HUMAN
     Indication: Pyrexia
     Dosage: UNK
     Route: 065
     Dates: start: 20161229, end: 20170209
  61. ITRACONAZOLE [Concomitant]
     Active Substance: ITRACONAZOLE
     Indication: Prophylaxis
     Dosage: UNK
     Route: 048
     Dates: start: 20161202, end: 20161228
  62. SODIUM CHLORIDE [Concomitant]
     Active Substance: SODIUM CHLORIDE
     Indication: Pyrexia
     Dosage: UNK
     Route: 065
     Dates: start: 20161222, end: 20161227
  63. SODIUM CHLORIDE [Concomitant]
     Active Substance: SODIUM CHLORIDE
     Dosage: UNK
     Route: 065
     Dates: start: 20161231, end: 20170113

REACTIONS (7)
  - Pyrexia [Not Recovered/Not Resolved]
  - Pleural effusion [Not Recovered/Not Resolved]
  - Depressive symptom [Not Recovered/Not Resolved]
  - Interleukin level increased [Not Recovered/Not Resolved]
  - Anal erosion [Recovering/Resolving]
  - Rash erythematous [Not Recovered/Not Resolved]
  - White blood cell count decreased [Recovered/Resolved]

NARRATIVE: CASE EVENT DATE: 20161121
